FAERS Safety Report 21495078 (Version 1)
Quarter: 2022Q4

REPORT INFORMATION
  Report Type: Spontaneous
  Country: US (occurrence: US)
  Receive Date: 20221022
  Receipt Date: 20221022
  Transmission Date: 20230113
  Serious: No
  Sender: FDA-Public Use
  Company Number: US-SA-SAC20221018000696

PATIENT
  Sex: Female

DRUGS (1)
  1. DUPIXENT [Suspect]
     Active Substance: DUPILUMAB
     Dosage: UNK, FREQUENCY: OTHER
     Route: 058

REACTIONS (7)
  - Lip blister [Unknown]
  - Burning sensation [Unknown]
  - Anxiety [Unknown]
  - Restlessness [Unknown]
  - Erythema [Unknown]
  - Insomnia [Unknown]
  - Product dose omission issue [Unknown]
